FAERS Safety Report 17816661 (Version 3)
Quarter: 2020Q4

REPORT INFORMATION
  Report Type: Report from Study
  Country: US (occurrence: US)
  Receive Date: 20200522
  Receipt Date: 20201123
  Transmission Date: 20210113
  Serious: Yes (Life-Threatening, Hospitalization, Other)
  Sender: FDA-Public Use
  Company Number: US-SA-2020SA115025

PATIENT

DRUGS (19)
  1. ACETAMINOPHEN. [Concomitant]
     Active Substance: ACETAMINOPHEN
     Indication: PYREXIA
     Dosage: 650 MG, AS NECESSARY
     Route: 048
     Dates: start: 20200419
  2. CEFTRIAXONE. [Concomitant]
     Active Substance: CEFTRIAXONE
     Indication: COVID-19 PNEUMONIA
     Dosage: 1000 MG, QD
     Route: 042
     Dates: start: 20200418, end: 20200423
  3. DIGOXIN. [Concomitant]
     Active Substance: DIGOXIN
     Indication: ARRHYTHMIA
     Dosage: 500 ?G, SINGLE
     Route: 042
     Dates: start: 20200429, end: 20200429
  4. HYDROXYCHLOROQUINE [Concomitant]
     Active Substance: HYDROXYCHLOROQUINE
     Indication: COVID-19
     Dosage: 400 MG, TOTAL
     Route: 048
     Dates: start: 20200419, end: 20200419
  5. PHENYLEPHRIN [EPINEPHRINE HYDROCHLORIDE] [Concomitant]
     Indication: ARRHYTHMIA
     Dosage: 100 MG TOTAL
     Route: 042
     Dates: start: 20200501, end: 20200501
  6. PHENYLEPHRIN [PHENYLEPHRINE HYDROCHLORIDE] [Concomitant]
     Indication: ARRHYTHMIA
     Dosage: 100 MG, TOTAL
     Route: 042
     Dates: start: 20200501, end: 20200501
  7. SARILUMAB [Suspect]
     Active Substance: SARILUMAB
     Dosage: 200 MG, 1X
     Route: 042
     Dates: start: 20200424, end: 20200424
  8. CEFEPIME [Concomitant]
     Active Substance: CEFEPIME HYDROCHLORIDE
     Dosage: 2000 MG, TID
     Route: 042
     Dates: start: 20200428, end: 20200430
  9. HYDROXYCHLOROQUINE [Concomitant]
     Active Substance: HYDROXYCHLOROQUINE
     Indication: COVID-19 PNEUMONIA
     Dosage: 200 MG, BID
     Route: 048
     Dates: start: 20200420, end: 20200423
  10. ASPIRIN [ACETYLSALICYLIC ACID] [Concomitant]
     Active Substance: ASPIRIN
     Indication: ANTICOAGULANT THERAPY
     Dosage: 81 MG, QD
     Route: 048
     Dates: start: 20200419, end: 20200420
  11. SARILUMAB [Suspect]
     Active Substance: SARILUMAB
     Indication: COVID-19
     Dosage: 200 MG, 1X
     Route: 042
     Dates: start: 20200423, end: 20200423
  12. ACETAMINOPHEN. [Concomitant]
     Active Substance: ACETAMINOPHEN
     Indication: PAIN
  13. DOXYCYCLIN [DOXYCYCLINE] [Concomitant]
     Active Substance: DOXYCYCLINE
     Indication: COVID-19 PNEUMONIA
     Dosage: 100 MG, BID
     Route: 048
     Dates: start: 20200418, end: 20200425
  14. ASPIRIN [ACETYLSALICYLIC ACID] [Concomitant]
     Active Substance: ASPIRIN
     Indication: ANTICOAGULANT THERAPY
     Dosage: 81 MG, QD
     Route: 048
     Dates: start: 20200419, end: 20200420
  15. ACETAMINOPHEN. [Concomitant]
     Active Substance: ACETAMINOPHEN
     Indication: PYREXIA
  16. AZITHROMYCIN ANHYDROUS. [Concomitant]
     Active Substance: AZITHROMYCIN ANHYDROUS
     Indication: COVID-19 PNEUMONIA
     Dosage: 500 MG, ONCE
     Route: 042
     Dates: start: 20200418, end: 20200418
  17. CEFEPIME [Concomitant]
     Active Substance: CEFEPIME HYDROCHLORIDE
     Indication: COVID-19 PNEUMONIA
     Dosage: 1000 MG, BID
     Route: 042
     Dates: start: 20200423, end: 20200428
  18. DOXYCYCLINE. [Concomitant]
     Active Substance: DOXYCYCLINE
     Indication: COVID-19 PNEUMONIA
     Dosage: 100 MG, BID
     Route: 048
     Dates: start: 20200418, end: 20200425
  19. MERREM [Concomitant]
     Active Substance: MEROPENEM
     Indication: COVID-19
     Dosage: 1000 MG, TID
     Route: 042
     Dates: start: 20200501, end: 20200504

REACTIONS (4)
  - Atrial flutter [Recovered/Resolved]
  - Acute respiratory failure [Recovered/Resolved with Sequelae]
  - Pulmonary embolism [Recovered/Resolved]
  - Bacteraemia [Recovered/Resolved]

NARRATIVE: CASE EVENT DATE: 20200426
